FAERS Safety Report 8982407 (Version 1)
Quarter: 2012Q4

REPORT INFORMATION
  Report Type: 
  Country: FR (occurrence: FR)
  Receive Date: 20121222
  Receipt Date: 20121222
  Transmission Date: 20130627
  Serious: Yes (Hospitalization)
  Sender: FDA-Public Use
  Company Number: FR-B.I. PHARMACEUTICALS,INC./RIDGEFIELD-2012-FF-02000FF

PATIENT
  Age: 86 Year
  Sex: Female

DRUGS (8)
  1. PRADAXA [Suspect]
     Route: 048
     Dates: end: 20121002
  2. LASILIX [Suspect]
     Route: 048
     Dates: end: 20121002
  3. DIFFU K [Suspect]
     Route: 048
     Dates: end: 20121002
  4. EUPANTOL [Suspect]
     Route: 048
     Dates: end: 20121002
  5. SPECIAFOLDINE [Suspect]
     Route: 048
     Dates: end: 20121002
  6. HEMIGOXINE NATIVELLE [Suspect]
     Route: 048
     Dates: end: 20121002
  7. PAROXETINE [Suspect]
     Route: 048
     Dates: end: 20121002
  8. BISOPROLOL HEMIFUMARATE [Concomitant]

REACTIONS (3)
  - Dehydration [Recovered/Resolved]
  - Hypernatraemia [Recovered/Resolved]
  - Renal failure [Recovered/Resolved]
